FAERS Safety Report 7593962-5 (Version None)
Quarter: 2011Q3

REPORT INFORMATION
  Report Type: 
  Country: None (occurrence: None)
  Receive Date: 20110706
  Receipt Date: 20110622
  Transmission Date: 20111222
  Serious: Yes (Hospitalization)
  Sender: FDA-Public Use
  Company Number: JP-AMGEN-JPNCT2011012546

PATIENT
  Age: 40 Year
  Sex: Male
  Weight: 57 kg

DRUGS (38)
  1. PANITUMUMAB [Suspect]
     Dosage: 6 MG/KG, Q2WK
     Dates: start: 20110215
  2. FLUOROURACIL [Suspect]
     Route: 041
     Dates: start: 20101018
  3. LEUCOVORIN CALCIUM [Suspect]
     Route: 041
     Dates: start: 20101018, end: 20110314
  4. MAGNESIUM SULFATE [Concomitant]
     Dosage: UNK
     Route: 048
  5. POTASSIUM CHLORIDE [Concomitant]
     Dosage: UNK
     Route: 042
  6. FAMOTIDINE [Concomitant]
     Dosage: UNK
     Route: 042
  7. OPYSTAN [Concomitant]
     Dosage: UNK
     Route: 042
  8. LEUCOVORIN CALCIUM [Suspect]
     Indication: COLORECTAL CANCER
     Route: 041
     Dates: start: 20101018
  9. ALOXI [Concomitant]
     Dosage: UNK
     Route: 042
  10. PRIMPERAN TAB [Concomitant]
     Dosage: UNK
     Route: 042
  11. MAXIPIME [Concomitant]
     Dosage: UNK
     Route: 042
  12. PANITUMUMAB [Suspect]
     Dosage: 6 MG/KG, Q2WK
     Dates: start: 20110113, end: 20110113
  13. FLUOROURACIL [Suspect]
     Indication: COLORECTAL CANCER
     Route: 040
     Dates: start: 20101018
  14. DEXAMETHASONE SODIUM PHOSPHATE [Concomitant]
     Dosage: UNK
     Route: 042
  15. ENSURE [Concomitant]
     Dosage: UNK
     Route: 048
  16. LOXOPROFEN [Concomitant]
     Dosage: UNK
     Route: 048
  17. VITAMEDIN INTRAVENOUS [Concomitant]
     Dosage: UNK
     Route: 042
  18. SCOPOLAMINE [Concomitant]
     Dosage: UNK
     Route: 042
  19. ATROPINE [Concomitant]
     Dosage: UNK
     Route: 042
  20. ROPIVACAINE HYDROCHLORIDE [Concomitant]
     Dosage: UNK
     Route: 042
  21. TPN ELECTROLYTES IN PLASTIC CONTAINER [Concomitant]
     Dosage: UNK
     Route: 042
  22. MINOCYCLINE HCL [Concomitant]
     Dosage: UNK
     Route: 048
  23. PANITUMUMAB [Suspect]
     Indication: COLORECTAL CANCER
     Dosage: 6 MG/KG, Q2WK
     Route: 041
     Dates: start: 20101018, end: 20101220
  24. FLUOROURACIL [Suspect]
     Route: 041
     Dates: start: 20101018, end: 20110314
  25. SOLDEM 1 [Concomitant]
     Route: 042
  26. SANDOSTATIN [Concomitant]
     Dosage: UNK
     Route: 042
  27. FULCALIQ [Concomitant]
     Dosage: UNK
     Route: 042
  28. IRINOTECAN HCL [Suspect]
     Indication: COLORECTAL CANCER
     Route: 041
     Dates: start: 20101018
  29. IRINOTECAN HCL [Suspect]
     Route: 041
     Dates: start: 20101018, end: 20110314
  30. ACETAMINOPHEN [Concomitant]
     Dosage: UNK
     Route: 048
  31. CEFMETAZOLE SODIUM [Concomitant]
     Dosage: UNK
     Route: 042
  32. VENOGLOBULIN [Concomitant]
     Dosage: UNK
     Route: 042
  33. PHYSIOSOL 3 [Concomitant]
     Dosage: UNK
     Route: 042
  34. FLUOROURACIL [Suspect]
     Route: 040
     Dates: start: 20101018, end: 20110314
  35. LACTEC [Concomitant]
     Dosage: UNK
     Route: 042
  36. PENTAZOCINE LACTATE [Concomitant]
     Dosage: UNK
     Route: 042
  37. RIBOFLAVIN TAB [Concomitant]
     Dosage: UNK
     Route: 048
  38. FLURBIPROFEN [Concomitant]
     Dosage: UNK
     Route: 042

REACTIONS (6)
  - BONE MARROW FAILURE [None]
  - DRY SKIN [None]
  - ILEUS [None]
  - RASH [None]
  - PARONYCHIA [None]
  - STOMATITIS [None]
